FAERS Safety Report 24844924 (Version 2)
Quarter: 2025Q1

REPORT INFORMATION
  Report Type: Spontaneous
  Country: JP (occurrence: JP)
  Receive Date: 20250115
  Receipt Date: 20250213
  Transmission Date: 20250409
  Serious: Yes (Hospitalization)
  Sender: ELI LILLY AND COMPANY
  Company Number: JP-ELI_LILLY_AND_COMPANY-JP202501003107

PATIENT
  Age: 75 Year
  Sex: Male
  Weight: 59.5 kg

DRUGS (1)
  1. INSULIN GLARGINE [Suspect]
     Active Substance: INSULIN GLARGINE
     Indication: Product used for unknown indication
     Route: 058

REACTIONS (4)
  - Suicide attempt [Unknown]
  - Hypoglycaemia [Recovered/Resolved]
  - Extra dose administered [Unknown]
  - Vascular pain [Unknown]
